FAERS Safety Report 9788539 (Version 1)
Quarter: 2013Q4

REPORT INFORMATION
  Report Type: Spontaneous
  Country: US (occurrence: US)
  Receive Date: 20131230
  Receipt Date: 20131230
  Transmission Date: 20140711
  Serious: Yes (Other)
  Sender: FDA-Public Use
  Company Number: US-BAYER-2013-158769

PATIENT
  Age: 34 Year
  Sex: Female

DRUGS (10)
  1. YAZ [Suspect]
  2. YASMIN [Suspect]
  3. OCELLA [Suspect]
  4. METRONIDAZOLE [Concomitant]
     Dosage: 0.75 %, UNK
     Route: 061
  5. MINOCYCLINE [Concomitant]
     Dosage: 50 MG, UNK
  6. OXYCODONE HYDROCHLORIDE [Concomitant]
     Dosage: 5 MG, UNK
  7. HYDROXYZINE [Concomitant]
     Dosage: 25 MG, UNK
  8. ACYCLOVIR [ACICLOVIR] [Concomitant]
     Dosage: 400 MG, BID
  9. PROZAC [Concomitant]
     Dosage: 20 MG, QD
  10. PERCOCET [Concomitant]
     Dosage: 5 MG-325 MG TID

REACTIONS (2)
  - Cholecystectomy [None]
  - Cholecystitis [None]
